FAERS Safety Report 10035634 (Version 1)
Quarter: 2014Q1

REPORT INFORMATION
  Report Type: Report from Study
  Country: US (occurrence: US)
  Receive Date: 20140325
  Receipt Date: 20140325
  Transmission Date: 20141002
  Serious: Yes (Other)
  Sender: FDA-Public Use
  Company Number: US-ABBVIE-14P-163-1199450-00

PATIENT
  Sex: Male

DRUGS (2)
  1. HUMIRA [Suspect]
     Indication: EXPOSURE VIA BODY FLUID
     Route: 050
  2. HUMIRA [Suspect]
     Indication: FOETAL EXPOSURE DURING PREGNANCY

REACTIONS (3)
  - Pulmonary oedema [Recovered/Resolved]
  - Paternal drugs affecting foetus [Unknown]
  - Foetal exposure during pregnancy [Unknown]
